FAERS Safety Report 7410294-6 (Version None)
Quarter: 2011Q2

REPORT INFORMATION
  Report Type: 
  Country: None (occurrence: None)
  Receive Date: 20110412
  Receipt Date: 20110325
  Transmission Date: 20111010
  Serious: Yes (Other)
  Sender: FDA-Public Use
  Company Number: US-B.I. PHARMACEUTICALS,INC./RIDGEFIELD-2011-BP-10518BP

PATIENT

DRUGS (1)
  1. PRADAXA [Suspect]
     Indication: CARDIAC VALVE PROSTHESIS USER

REACTIONS (2)
  - ISCHAEMIA [None]
  - ARTERIAL THROMBOSIS [None]
